FAERS Safety Report 8308727-6 (Version None)
Quarter: 2012Q2

REPORT INFORMATION
  Report Type: 
  Country: None (occurrence: None)
  Receive Date: 20120424
  Receipt Date: 20120416
  Transmission Date: 20120825
  Serious: Yes (Other)
  Sender: FDA-Public Use
  Company Number: BR-ABBOTT-12P-020-0926400-00

PATIENT
  Sex: Female
  Weight: 62 kg

DRUGS (3)
  1. SYNTHROID [Suspect]
     Indication: HYPOTHYROIDISM
     Dosage: 1 TABLET ON EMPTY STOMACH
     Route: 048
     Dates: start: 19990101, end: 20010901
  2. SYNTHROID [Suspect]
     Dosage: 1 TABLET ON EMPTY STOMACH
     Route: 048
     Dates: start: 20110901, end: 20120301
  3. SYNTHROID [Suspect]
     Dosage: 1 TABLET ON EMPTY STOMACH
     Route: 048
     Dates: start: 20120301

REACTIONS (10)
  - HYPOVITAMINOSIS [None]
  - PRURITUS ALLERGIC [None]
  - OSTEOPENIA [None]
  - BREAST CANCER [None]
  - DRUG INEFFECTIVE [None]
  - HYPERSENSITIVITY [None]
  - DERMATITIS ALLERGIC [None]
  - BLOOD CALCIUM DECREASED [None]
  - SKIN EXFOLIATION [None]
  - VITAMIN B12 DEFICIENCY [None]
